FAERS Safety Report 8351660-4 (Version None)
Quarter: 2012Q2

REPORT INFORMATION
  Report Type: 
  Country: None (occurrence: None)
  Receive Date: 20120511
  Receipt Date: 20120501
  Transmission Date: 20120825
  Serious: No
  Sender: FDA-Public Use
  Company Number: US-BIOGENIDEC-2012BI015457

PATIENT
  Sex: Female

DRUGS (2)
  1. TYSABRI [Suspect]
     Indication: MULTIPLE SCLEROSIS
     Route: 042
     Dates: start: 20080603, end: 20110817
  2. TYSABRI [Suspect]
     Route: 042
     Dates: start: 20111020, end: 20120301

REACTIONS (2)
  - CENTRAL VENOUS CATHETERISATION [None]
  - FATIGUE [None]
